FAERS Safety Report 14513954 (Version 1)
Quarter: 2018Q1

REPORT INFORMATION
  Report Type: Spontaneous
  Country: US (occurrence: US)
  Receive Date: 20180209
  Receipt Date: 20180209
  Transmission Date: 20180509
  Serious: No
  Sender: FDA-Public Use
  Company Number: US-AMNEAL PHARMACEUTICALS-2017AMN00746

PATIENT
  Age: 45 Year
  Sex: Female
  Weight: 72.56 kg

DRUGS (3)
  1. ASPIRIN. [Concomitant]
     Active Substance: ASPIRIN
     Dosage: UNK
     Route: 048
  2. NAPROXEN. [Suspect]
     Active Substance: NAPROXEN
     Indication: DYSMENORRHOEA
     Dosage: 1 TABLETS, 1X/DAY OR 2X/DAY
     Route: 048
     Dates: start: 20170714, end: 20170714
  3. ALPRAZOLAM. [Concomitant]
     Active Substance: ALPRAZOLAM
     Dosage: UNK
     Route: 048

REACTIONS (3)
  - Muscle strain [Not Recovered/Not Resolved]
  - Facial wasting [Not Recovered/Not Resolved]
  - Product tampering [Not Recovered/Not Resolved]

NARRATIVE: CASE EVENT DATE: 20170714
